FAERS Safety Report 24005026 (Version 1)
Quarter: 2024Q2

REPORT INFORMATION
  Report Type: Spontaneous
  Country: US (occurrence: None)
  Receive Date: 20240621
  Receipt Date: 20240621
  Transmission Date: 20240717
  Serious: Yes (Hospitalization)
  Sender: FDA-Public Use
  Company Number: None

PATIENT
  Age: 59 Year
  Sex: Male
  Weight: 76 kg

DRUGS (1)
  1. SERTRALINE HYDROCHLORIDE [Suspect]
     Active Substance: SERTRALINE HYDROCHLORIDE
     Indication: Depression
     Dosage: FREQUENCY : DAILY;?
     Route: 048
     Dates: start: 20240304, end: 20240319

REACTIONS (8)
  - Constipation [None]
  - Dizziness [None]
  - Fall [None]
  - Skin laceration [None]
  - Headache [None]
  - Nausea [None]
  - Vomiting [None]
  - Loss of consciousness [None]

NARRATIVE: CASE EVENT DATE: 20240318
